FAERS Safety Report 7151041-5 (Version None)
Quarter: 2010Q4

REPORT INFORMATION
  Report Type: 
  Country: None (occurrence: None)
  Receive Date: 20101210
  Receipt Date: 20101201
  Transmission Date: 20110411
  Serious: Yes (Other)
  Sender: FDA-Public Use
  Company Number: B0688009A

PATIENT
  Age: 24 Year

DRUGS (4)
  1. TRIZIVIR [Suspect]
     Indication: HIV INFECTION
  2. TRUVADA [Suspect]
     Indication: HIV INFECTION
     Route: 065
  3. STOCRIN [Suspect]
     Indication: HIV INFECTION
     Route: 065
  4. ANTI-TUBERCULOSIS MEDICATION [Concomitant]

REACTIONS (9)
  - ALANINE AMINOTRANSFERASE INCREASED [None]
  - BLOOD IRON DECREASED [None]
  - BODY TEMPERATURE INCREASED [None]
  - HEPATOMEGALY [None]
  - IMMUNE RECONSTITUTION SYNDROME [None]
  - LYMPHADENOPATHY [None]
  - MEDIASTINUM NEOPLASM [None]
  - RED BLOOD CELL SEDIMENTATION RATE INCREASED [None]
  - WEIGHT INCREASED [None]
